FAERS Safety Report 6572661-2 (Version None)
Quarter: 2010Q1

REPORT INFORMATION
  Report Type: 
  Country: None (occurrence: None)
  Receive Date: 20100205
  Receipt Date: 20100121
  Transmission Date: 20100710
  Serious: Yes (Other)
  Sender: FDA-Public Use
  Company Number: BR-GENENTECH-289051

PATIENT
  Sex: Female
  Weight: 90 kg

DRUGS (8)
  1. RITUXIMAB [Suspect]
     Indication: SJOGREN'S SYNDROME
     Dosage: 1000 MG, UNK
     Route: 042
     Dates: start: 20090701, end: 20100105
  2. RITUXIMAB [Suspect]
     Dosage: UNK
     Route: 042
     Dates: start: 20100120, end: 20100120
  3. RITUXIMAB [Suspect]
     Dosage: UNK
     Route: 042
     Dates: start: 20090708, end: 20090708
  4. PRELONE [Concomitant]
     Indication: DRUG USE FOR UNKNOWN INDICATION
     Dosage: 20 MG, UNK
  5. CHLOROQUINE PHOSPHATE [Concomitant]
     Indication: DRUG USE FOR UNKNOWN INDICATION
     Dosage: 400 MG, UNK
  6. AMPICILLIN [Concomitant]
     Indication: DRUG USE FOR UNKNOWN INDICATION
     Dosage: UNK
  7. FLUOXETINE [Concomitant]
     Indication: DRUG USE FOR UNKNOWN INDICATION
  8. HYDROXYCHLOROQUINE SULFATE [Concomitant]
     Indication: DRUG USE FOR UNKNOWN INDICATION

REACTIONS (27)
  - ARTHRALGIA [None]
  - BLOOD PRESSURE ABNORMAL [None]
  - CONDITION AGGRAVATED [None]
  - DYSPNOEA [None]
  - FATIGUE [None]
  - FEAR OF DEATH [None]
  - HAEMATOMA [None]
  - HEART RATE INCREASED [None]
  - HYPERSENSITIVITY [None]
  - HYPOTENSION [None]
  - LEUKOPENIA [None]
  - OEDEMA PERIPHERAL [None]
  - OESOPHAGEAL PAIN [None]
  - PAIN [None]
  - PAROTID GLAND ENLARGEMENT [None]
  - PHARYNGEAL OEDEMA [None]
  - PRURITUS [None]
  - PYREXIA [None]
  - SERUM SICKNESS [None]
  - SJOGREN'S SYNDROME [None]
  - SKIN NODULE [None]
  - SWELLING [None]
  - SWELLING FACE [None]
  - SYNCOPE [None]
  - THROAT IRRITATION [None]
  - URTICARIA [None]
  - VASCULITIS [None]
